FAERS Safety Report 4627914-1 (Version None)
Quarter: 2005Q2

REPORT INFORMATION
  Report Type: 
  Country: None (occurrence: None)
  Receive Date: 20050401
  Receipt Date: 20050318
  Transmission Date: 20051028
  Serious: Yes (Hospitalization)
  Sender: FDA-Public Use
  Company Number: 8009590

PATIENT
  Age: 16 Year
  Sex: Female
  Weight: 59 kg

DRUGS (6)
  1. KEPPRA [Suspect]
     Indication: CONVULSION
     Dosage: 500 MG 2/D PO
     Route: 048
     Dates: start: 20041101
  2. KEPPRA [Suspect]
     Indication: CONVULSION
     Dosage: 1000 MG 2/D PO
     Route: 048
     Dates: end: 20050301
  3. KEPPRA [Suspect]
     Indication: CONVULSION
     Dosage: 1500 MG /D PO
     Route: 048
     Dates: start: 20050302, end: 20050307
  4. KEPPRA [Suspect]
     Indication: CONVULSION
     Dosage: 500 MG 2/D PO
     Route: 048
     Dates: start: 20050308
  5. RITALIN [Suspect]
     Indication: ATTENTION DEFICIT/HYPERACTIVITY DISORDER
     Dosage: 25 MG 4/D PO
     Route: 048
  6. ORTHO EVRA [Concomitant]

REACTIONS (10)
  - AGGRESSION [None]
  - ANGER [None]
  - BIPOLAR DISORDER [None]
  - CONVULSION [None]
  - DEPRESSION [None]
  - HEPATIC ENZYME INCREASED [None]
  - HOMICIDAL IDEATION [None]
  - INTENTIONAL SELF-INJURY [None]
  - SUICIDE ATTEMPT [None]
  - VIRAL DNA TEST POSITIVE [None]
